FAERS Safety Report 7259792-9 (Version None)
Quarter: 2011Q1

REPORT INFORMATION
  Report Type: 
  Country: None (occurrence: None)
  Receive Date: 20110130
  Receipt Date: 20100904
  Transmission Date: 20110831
  Serious: No
  Sender: FDA-Public Use
  Company Number: US-ABBOTT-10P-163-0668911-00

PATIENT
  Age: 45 Year
  Sex: Male

DRUGS (5)
  1. NORCO [Concomitant]
     Indication: PAIN
     Dosage: 10/325 TID
  2. MS CONTIN [Concomitant]
     Indication: PAIN
  3. STEROIDS [Concomitant]
     Indication: BLOOD TESTOSTERONE DECREASED
  4. HUMIRA [Suspect]
     Indication: CROHN'S DISEASE
     Dates: start: 20100601
  5. GABAPENTIN [Concomitant]
     Indication: PAIN

REACTIONS (1)
  - NODULE [None]
